FAERS Safety Report 22803804 (Version 4)
Quarter: 2023Q4

REPORT INFORMATION
  Report Type: Spontaneous
  Country: JP (occurrence: JP)
  Receive Date: 20230809
  Receipt Date: 20231108
  Transmission Date: 20240110
  Serious: Yes (Life-Threatening, Other)
  Sender: FDA-Public Use
  Company Number: JP-ELI_LILLY_AND_COMPANY-JP202308000531

PATIENT
  Age: 73 Year
  Sex: Female
  Weight: 30 kg

DRUGS (6)
  1. CYRAMZA [Suspect]
     Active Substance: RAMUCIRUMAB
     Indication: Gastric cancer stage IV
     Dosage: 270 MG, CYCLICAL
     Route: 041
     Dates: start: 20230221, end: 20230711
  2. PACLITAXEL [Concomitant]
     Active Substance: PACLITAXEL
     Indication: Gastric cancer stage IV
     Dosage: 115 MG, CYCLICAL
     Route: 041
     Dates: start: 20230221, end: 20230711
  3. AMINO ACIDS\DEXTROSE\ELECTROLYTES NOS\MINERALS\VITAMINS [Concomitant]
     Active Substance: AMINO ACIDS\DEXTROSE\ELECTROLYTES NOS\MINERALS\VITAMINS
     Dosage: 1000 MG, UNKNOWN
     Route: 041
     Dates: start: 20211011, end: 20220202
  4. AMINO ACIDS\DEXTROSE\ELECTROLYTES NOS\MINERALS\VITAMINS [Concomitant]
     Active Substance: AMINO ACIDS\DEXTROSE\ELECTROLYTES NOS\MINERALS\VITAMINS
     Dosage: 1000 MG, UNKNOWN
     Route: 041
     Dates: start: 20220203
  5. ANAMORELIN HYDROCHLORIDE [Concomitant]
     Active Substance: ANAMORELIN HYDROCHLORIDE
     Indication: Decreased appetite
     Dosage: 100 MG, UNKNOWN
     Route: 048
     Dates: start: 20220530, end: 20230822
  6. SPIRONOLACTONE [Concomitant]
     Active Substance: SPIRONOLACTONE
     Indication: Oedema
     Dosage: 25 MG, UNKNOWN
     Route: 048
     Dates: start: 20230613, end: 20230822

REACTIONS (7)
  - Subarachnoid haemorrhage [Not Recovered/Not Resolved]
  - Contusion [Unknown]
  - Thrombophlebitis migrans [Unknown]
  - Tumour haemorrhage [Recovered/Resolved]
  - Cerebellar infarction [Unknown]
  - Haematemesis [Unknown]
  - Malignant neoplasm progression [Unknown]

NARRATIVE: CASE EVENT DATE: 20230822
